FAERS Safety Report 5669558-9 (Version None)
Quarter: 2008Q1

REPORT INFORMATION
  Report Type: 
  Country: None (occurrence: None)
  Receive Date: 20080317
  Receipt Date: 20080304
  Transmission Date: 20080703
  Serious: Yes (Other)
  Sender: FDA-Public Use
  Company Number: PHBS2008KR01167

PATIENT
  Age: 64 Year
  Sex: Female

DRUGS (2)
  1. GLEEVEC [Suspect]
     Indication: CHRONIC MYELOID LEUKAEMIA
     Dosage: 400 MG/D
     Route: 048
     Dates: start: 20030328
  2. GLEEVEC [Suspect]
     Dosage: 300 MG/D
     Route: 048

REACTIONS (9)
  - CHLOROMA [None]
  - FIBROMATOSIS [None]
  - HYPERAESTHESIA [None]
  - MUSCULOSKELETAL PAIN [None]
  - MUSCULOSKELETAL STIFFNESS [None]
  - NECK MASS [None]
  - NECK PAIN [None]
  - NODULAR FASCIITIS [None]
  - TENDERNESS [None]
